FAERS Safety Report 9520425 (Version 1)
Quarter: 2013Q3

REPORT INFORMATION
  Report Type: Report from Study
  Country: KR (occurrence: KR)
  Receive Date: 20130912
  Receipt Date: 20130912
  Transmission Date: 20140515
  Serious: No
  Sender: FDA-Public Use
  Company Number: PHHY2013KR096997

PATIENT
  Age: 32 Year
  Sex: Male

DRUGS (1)
  1. SOM230 [Suspect]
     Indication: CUSHING^S SYNDROME

REACTIONS (4)
  - Dizziness [Unknown]
  - Nausea [Unknown]
  - Hyperglycaemia [Unknown]
  - Fatigue [Unknown]
